FAERS Safety Report 15756062 (Version 7)
Quarter: 2019Q3

REPORT INFORMATION
  Report Type: Report from Study
  Country: CH (occurrence: CH)
  Receive Date: 20181224
  Receipt Date: 20190927
  Transmission Date: 20191004
  Serious: Yes (Hospitalization)
  Sender: FDA-Public Use
  Company Number: PHHO2018CH013344

PATIENT
  Age: 61 Year
  Sex: Female
  Weight: 84.9 kg

DRUGS (33)
  1. IBUPROFEN. [Concomitant]
     Active Substance: IBUPROFEN
     Indication: HEADACHE
     Dosage: 400 MG, PRN
     Route: 048
     Dates: start: 20180930
  2. AUGMENTIN [Concomitant]
     Active Substance: AMOXICILLIN\CLAVULANATE POTASSIUM
     Indication: INFECTION
     Dosage: 625 MG, TID
     Route: 048
     Dates: start: 20130628, end: 20130702
  3. PEVARYL [Concomitant]
     Active Substance: ECONAZOLE NITRATE
     Indication: VULVOVAGINAL CANDIDIASIS
     Dosage: UNK
     Route: 065
     Dates: start: 20130730, end: 20130811
  4. VI-DE 3 [Concomitant]
     Active Substance: CHOLECALCIFEROL
     Indication: VITAMIN D DEFICIENCY
     Dosage: UNK
     Route: 065
     Dates: start: 20171218
  5. PONSTAN [Concomitant]
     Active Substance: MEFENAMIC ACID
     Indication: BACK PAIN
     Dosage: 0.5 G, PRN
     Route: 048
     Dates: start: 20180702, end: 20180929
  6. ECOMUCYL [Concomitant]
     Indication: BRONCHITIS
     Dosage: UNK
     Route: 065
     Dates: start: 20161122
  7. TOREM [Concomitant]
     Active Substance: TORSEMIDE
     Indication: PRODUCT USED FOR UNKNOWN INDICATION
     Dosage: UNK
     Route: 065
     Dates: start: 20130418, end: 20130805
  8. AUGMENTIN [Concomitant]
     Active Substance: AMOXICILLIN\CLAVULANATE POTASSIUM
     Indication: ERYSIPELAS
     Dosage: 625 MG, TID
     Route: 048
     Dates: start: 20130704, end: 20130705
  9. AUGMENTIN [Concomitant]
     Active Substance: AMOXICILLIN\CLAVULANATE POTASSIUM
     Dosage: 1 G, BID
     Route: 048
     Dates: start: 20150815, end: 20150822
  10. CETALLERG [Concomitant]
     Active Substance: CETIRIZINE HYDROCHLORIDE
     Indication: SEASONAL ALLERGY
     Dosage: UNK
     Route: 065
     Dates: start: 20150318
  11. VENTOLIN [Concomitant]
     Active Substance: ALBUTEROL SULFATE
     Indication: SEASONAL ALLERGY
     Dosage: UNK
     Route: 065
     Dates: start: 20180416
  12. AVAMYS [Concomitant]
     Active Substance: FLUTICASONE FUROATE
     Indication: SEASONAL ALLERGY
     Dosage: UNK
     Route: 065
     Dates: start: 20180426
  13. ELOCOM [Concomitant]
     Active Substance: MOMETASONE FUROATE
     Indication: ECZEMA
     Dosage: UNK
     Route: 065
     Dates: start: 20160809
  14. AUGMENTIN [Concomitant]
     Active Substance: AMOXICILLIN\CLAVULANATE POTASSIUM
     Dosage: 2.2 G, TID
     Route: 042
     Dates: start: 20130705, end: 20130708
  15. AZITHROMYCINE [Concomitant]
     Active Substance: AZITHROMYCIN
     Indication: COUGH
     Dosage: UNK
     Route: 065
     Dates: start: 20161122
  16. MACROGOL [Concomitant]
     Active Substance: POLYETHYLENE GLYCOLS
     Indication: CONSTIPATION
     Dosage: UNK
     Route: 065
     Dates: start: 20170612
  17. BILAXTEN [Concomitant]
     Active Substance: BILASTINE
     Indication: SEASONAL ALLERGY
     Dosage: UNK
     Route: 065
     Dates: start: 20180416
  18. DABRAFENIB [Suspect]
     Active Substance: DABRAFENIB
     Indication: MALIGNANT MELANOMA
     Dosage: 150 MG, BID
     Route: 048
     Dates: start: 20130124, end: 20181218
  19. LASIX [Concomitant]
     Active Substance: FUROSEMIDE
     Indication: LYMPHOEDEMA
     Dosage: UNK
     Route: 065
     Dates: start: 20130806, end: 20130930
  20. CORTINASAL [Concomitant]
     Indication: SEASONAL ALLERGY
     Dosage: 100 MG
     Route: 065
     Dates: start: 20150318
  21. NUTRAPLUS [Concomitant]
     Indication: ECZEMA
     Dosage: UNK
     Route: 065
     Dates: start: 20180319
  22. RESYL PLUS [Concomitant]
     Active Substance: CODEINE PHOSPHATE\GUAIFENESIN
     Indication: NASOPHARYNGITIS
     Dosage: UNK
     Route: 065
     Dates: start: 20180416, end: 20180422
  23. BEXIN [Concomitant]
     Active Substance: DEXTROMETHORPHAN HYDROBROMIDE
     Indication: NASOPHARYNGITIS
     Dosage: UNK
     Route: 065
     Dates: start: 20180423, end: 20180501
  24. AUGMENTIN [Concomitant]
     Active Substance: AMOXICILLIN\CLAVULANATE POTASSIUM
     Dosage: 625 MG, TID
     Route: 048
     Dates: start: 20130709, end: 20130713
  25. PROSPAN [Concomitant]
     Active Substance: IVY EXTRACT
     Indication: COUGH
     Dosage: UNK
     Route: 065
     Dates: start: 20161122
  26. TRAMETINIB [Suspect]
     Active Substance: TRAMETINIB
     Indication: MALIGNANT MELANOMA
     Dosage: 2 MG, QD
     Route: 048
     Dates: start: 20130124, end: 20181218
  27. LATANOPROST. [Concomitant]
     Active Substance: LATANOPROST
     Indication: INTRAOCULAR PRESSURE TEST ABNORMAL
     Dosage: EYE DROPS
     Route: 065
  28. NEXIAM [Concomitant]
     Active Substance: ESOMEPRAZOLE
     Indication: PROPHYLAXIS
     Dosage: UNK
     Route: 065
     Dates: start: 20130418
  29. LIVOSTIN [Concomitant]
     Active Substance: LEVOCABASTINE HYDROCHLORIDE
     Indication: SEASONAL ALLERGY
     Dosage: EYEDROPS
     Route: 065
     Dates: start: 20150318
  30. DUPHALAC [Concomitant]
     Active Substance: LACTULOSE
     Indication: CONSTIPATION
     Dosage: UNK
     Route: 065
     Dates: start: 20170515, end: 20170520
  31. ELOCOM [Concomitant]
     Active Substance: MOMETASONE FUROATE
     Indication: RASH
     Dosage: UNK
     Route: 065
     Dates: start: 20130207, end: 20141121
  32. DOXYCYCLIN [Concomitant]
     Active Substance: DOXYCYCLINE
     Indication: ERYSIPELAS
     Dosage: 100 MG, QD
     Route: 048
     Dates: start: 20150823, end: 20150907
  33. SINUPRET FORTE [Concomitant]
     Active Substance: HERBALS
     Indication: BRONCHITIS
     Dosage: UNK
     Route: 065
     Dates: start: 20161122

REACTIONS (1)
  - Acute kidney injury [Recovered/Resolved with Sequelae]

NARRATIVE: CASE EVENT DATE: 20181203
